FAERS Safety Report 6111881-8 (Version None)
Quarter: 2009Q1

REPORT INFORMATION
  Report Type: 
  Country: None (occurrence: None)
  Receive Date: 20090311
  Receipt Date: 20090227
  Transmission Date: 20090719
  Serious: Yes (Death)
  Sender: FDA-Public Use
  Company Number: US-WATSON-2009-01438

PATIENT
  Sex: Male

DRUGS (2)
  1. ALLOPURINOL (WATSON LABORATORIES) [Suspect]
     Indication: LYMPHOMA
     Dosage: 100 MG DAILY TIMES 14 DAYS
     Route: 048
     Dates: start: 20080925, end: 20081009
  2. TREANDA [Suspect]
     Indication: CHRONIC LYMPHOCYTIC LEUKAEMIA
     Dosage: UNK
     Route: 042
     Dates: start: 20081006, end: 20081007

REACTIONS (3)
  - SEPSIS [None]
  - STEVENS-JOHNSON SYNDROME [None]
  - TOXIC EPIDERMAL NECROLYSIS [None]
